APPROVED DRUG PRODUCT: METHOHEXITAL SODIUM
Active Ingredient: METHOHEXITAL SODIUM
Strength: 500MG/VIAL
Dosage Form/Route: INJECTABLE;INJECTION
Application: A215488 | Product #001 | TE Code: AP
Applicant: ONESOURCE SPECIALTY PTE LTD
Approved: Oct 3, 2024 | RLD: No | RS: No | Type: RX